FAERS Safety Report 18758322 (Version 2)
Quarter: 2021Q1

REPORT INFORMATION
  Report Type: Spontaneous
  Country: US (occurrence: US)
  Receive Date: 20210120
  Receipt Date: 20210129
  Transmission Date: 20210419
  Serious: Yes (Hospitalization)
  Sender: FDA-Public Use
  Company Number: US-AUROBINDO-AUR-APL-2021-002112

PATIENT
  Age: 54 Year
  Sex: Female

DRUGS (1)
  1. MILK OF MAGNESIA [Suspect]
     Active Substance: MAGNESIUM HYDROXIDE
     Indication: CONSTIPATION
     Dosage: 1200 MILLIGRAM, FOUR TIMES/DAY
     Route: 048

REACTIONS (1)
  - Hypermagnesaemia [Recovered/Resolved]
